FAERS Safety Report 5542573-1 (Version None)
Quarter: 2007Q4

REPORT INFORMATION
  Report Type: 
  Country: None (occurrence: None)
  Receive Date: 20071123
  Receipt Date: 20070718
  Transmission Date: 20080405
  Serious: Yes (Other)
  Sender: FDA-Public Use
  Company Number: US-JNJFOC-20070704759

PATIENT
  Age: 45 Year
  Sex: Female

DRUGS (1)
  1. LEVAQUIN [Suspect]
     Indication: EAR INFECTION
     Dosage: 500 MG, 1 IN 1 DAY, ORAL
     Route: 048
     Dates: start: 20070702, end: 20070710

REACTIONS (4)
  - ARTHRALGIA [None]
  - BURNING SENSATION [None]
  - NAUSEA [None]
  - TREMOR [None]
